FAERS Safety Report 14185566 (Version 1)
Quarter: 2017Q4

REPORT INFORMATION
  Report Type: Spontaneous
  Country: US (occurrence: None)
  Receive Date: 20171112
  Receipt Date: 20171112
  Transmission Date: 20180321
  Serious: No
  Sender: FDA-Public Use
  Company Number: None

PATIENT
  Sex: Female

DRUGS (1)
  1. HUMIRA [Suspect]
     Active Substance: ADALIMUMAB
     Indication: RHEUMATOID ARTHRITIS
     Route: 058
     Dates: start: 20170118

REACTIONS (8)
  - Eye irritation [None]
  - Insomnia [None]
  - Gait disturbance [None]
  - Laziness [None]
  - Limb discomfort [None]
  - Myalgia [None]
  - Chills [None]
  - Paraesthesia [None]
